FAERS Safety Report 4545256-X (Version None)
Quarter: 2005Q1

REPORT INFORMATION
  Report Type: 
  Country: None (occurrence: None)
  Receive Date: 20050103
  Receipt Date: 20041222
  Transmission Date: 20050727
  Serious: Yes (Hospitalization)
  Sender: FDA-Public Use
  Company Number: HQWYE170923DEC04

PATIENT
  Age: 50 Year
  Sex: Male

DRUGS (4)
  1. VENLAFAXINE HCL [Suspect]
     Dosage: 300 MG 1X PER 1 DAY ORAL
     Route: 048
  2. LUDIOMIL [Suspect]
     Dosage: 150 MG 1X PER 1 DAY
  3. REBOXETINE (REBOXETINE) [Suspect]
     Dosage: 8 MG 1X PER 1 DAY
  4. VITAMIN B CONMPLEX (CALCIUM PANTOTHENATE/NICOTINAMIDE/PYRIDOXINE HYDRO [Concomitant]

REACTIONS (11)
  - ACQUIRED DIAPHRAGMATIC EVENTRATION [None]
  - BLOOD PRESSURE FLUCTUATION [None]
  - DRUG INTERACTION [None]
  - LEUKOCYTOSIS [None]
  - MUTISM [None]
  - NEGATIVISM [None]
  - NEUTROPHILIA [None]
  - PSYCHOMOTOR AGITATION [None]
  - SEROTONIN SYNDROME [None]
  - THYROXINE DECREASED [None]
  - TREMOR [None]
